FAERS Safety Report 11910143 (Version 2)
Quarter: 2016Q2

REPORT INFORMATION
  Report Type: Spontaneous
  Country: US (occurrence: US)
  Receive Date: 20160112
  Receipt Date: 20160411
  Transmission Date: 20160815
  Serious: No
  Sender: FDA-Public Use
  Company Number: US-PFIZER INC-2015463336

PATIENT
  Age: 82 Year
  Sex: Female

DRUGS (9)
  1. AMBIEN [Concomitant]
     Active Substance: ZOLPIDEM TARTRATE
     Indication: SLEEP DISORDER
     Dosage: 10 MG, 1 TABLET HS SLEEP TO 5 (ILLEGIBLE)
  2. PREMARIN [Suspect]
     Active Substance: ESTROGENS, CONJUGATED
     Indication: VULVOVAGINAL DRYNESS
     Dosage: UNK, 3X/DAY
     Route: 067
  3. LYRICA [Suspect]
     Active Substance: PREGABALIN
     Dosage: 75 MG, 2X/DAY
  4. SOMA [Concomitant]
     Active Substance: CARISOPRODOL
     Dosage: 350 MG, 2 A DAY BACK, 5 BACK DURATION AT 1969, LAST 2009 ONGOING
  5. PREMARIN [Suspect]
     Active Substance: ESTROGENS, CONJUGATED
     Indication: VAGINAL HAEMORRHAGE
     Dosage: 2 TO 3 TIMES A WEEK
     Route: 067
  6. ASA [Concomitant]
     Active Substance: ASPIRIN
     Dosage: 81 MG, UNK
  7. IBUPROFEN. [Concomitant]
     Active Substance: IBUPROFEN
     Indication: RHEUMATOID ARTHRITIS
     Dosage: 800 MG, AS NEEDED
  8. LYRICA [Suspect]
     Active Substance: PREGABALIN
     Indication: NEUROPATHY PERIPHERAL
     Dosage: 75 MG, 3X/DAY
  9. KLOR-CON [Concomitant]
     Active Substance: POTASSIUM CHLORIDE
     Dosage: 10 MEQ, 2 A DAY 7-(ILLEGIBLE)

REACTIONS (3)
  - Malaise [Unknown]
  - Back disorder [Unknown]
  - Limb discomfort [Unknown]
